FAERS Safety Report 23878469 (Version 4)
Quarter: 2024Q2

REPORT INFORMATION
  Report Type: Spontaneous
  Country: FI (occurrence: FI)
  Receive Date: 20240521
  Receipt Date: 20240611
  Transmission Date: 20240715
  Serious: Yes (Hospitalization, Other)
  Sender: FDA-Public Use
  Company Number: FI-Orion Corporation ORION PHARMA-BISO2024-0004

PATIENT
  Age: 84 Year
  Sex: Female

DRUGS (16)
  1. ALLOPURINOL [Suspect]
     Active Substance: ALLOPURINOL
     Indication: Product used for unknown indication
     Dosage: 100 MILLIGRAM, 2X PER DAY
     Route: 065
  2. METFORMIN [Suspect]
     Active Substance: METFORMIN HYDROCHLORIDE
     Indication: Type 2 diabetes mellitus
     Dosage: 500 MILLIGRAM, 2X PER DAY (1000 MG, QD)
     Route: 065
  3. BISOPROLOL [Interacting]
     Active Substance: BISOPROLOL\BISOPROLOL FUMARATE
     Indication: Product used for unknown indication
     Dosage: 5 MILLIGRAM, 2 X 2 (10 MILLIGRAM, QD)
     Route: 065
  4. BISOPROLOL [Interacting]
     Active Substance: BISOPROLOL\BISOPROLOL FUMARATE
     Dosage: 20 MILLIGRAM, QD
     Route: 065
  5. BISOPROLOL [Interacting]
     Active Substance: BISOPROLOL\BISOPROLOL FUMARATE
     Dosage: 5 MILLIGRAM
     Route: 065
  6. BISOPROLOL [Interacting]
     Active Substance: BISOPROLOL\BISOPROLOL FUMARATE
     Dosage: 5 MG 1 + 0,5
     Route: 065
  7. DORZOLAMIDE HYDROCHLORIDE\TIMOLOL MALEATE [Suspect]
     Active Substance: DORZOLAMIDE HYDROCHLORIDE\TIMOLOL MALEATE
     Indication: Ocular hypertension
     Dosage: 20MG/ML AND 5MG/ML
     Route: 065
  8. LOSARTAN [Suspect]
     Active Substance: LOSARTAN
     Indication: Product used for unknown indication
     Dosage: 12.5 MILLIGRAM, 1X PER DAY
     Route: 065
  9. LOSARTAN [Suspect]
     Active Substance: LOSARTAN
     Dosage: UNK, QD
     Route: 065
  10. DIGOXIN [Interacting]
     Active Substance: DIGOXIN
     Indication: Atrial flutter
     Dosage: 0.062 MILLIGRAM, 1X PER DAY
     Route: 065
  11. TIMOLOL MALEATE [Interacting]
     Active Substance: TIMOLOL MALEATE
     Indication: Ocular discomfort
     Dosage: 5 MILLIGRAM PER MILLILITRE
     Route: 065
  12. DORZOLAMIDE HYDROCHLORIDE [Interacting]
     Active Substance: DORZOLAMIDE HYDROCHLORIDE
     Indication: Ocular discomfort
     Dosage: 20 MILLIGRAM PER MILLILITRE
     Route: 065
  13. FUROSEMIDE [Suspect]
     Active Substance: FUROSEMIDE
     Indication: Product used for unknown indication
     Dosage: 40 MILLIGRAM 2 PLUS 2
     Route: 065
  14. FUROSEMIDE [Suspect]
     Active Substance: FUROSEMIDE
     Dosage: 160 MILLIGRAM, QD
     Route: 065
  15. EDOXABAN [Suspect]
     Active Substance: EDOXABAN
     Indication: Product used for unknown indication
     Dosage: 30 MILLIGRAM, 1X PER DAY
     Route: 065
  16. TAFLUPROST [Suspect]
     Active Substance: TAFLUPROST
     Indication: Product used for unknown indication
     Dosage: 15 MCG/ML (15 ?G/ML, 1 DROP IN THE EVENING INTO THE LEFT EYE)
     Route: 065

REACTIONS (12)
  - Head discomfort [Recovered/Resolved]
  - Stasis dermatitis [Unknown]
  - Syncope [Unknown]
  - Sinus node dysfunction [Recovered/Resolved]
  - Heart rate decreased [Recovered/Resolved]
  - Drug interaction [Unknown]
  - Cardioactive drug level increased [Unknown]
  - Intraocular pressure increased [Recovered/Resolved]
  - Tinnitus [Unknown]
  - Presyncope [Recovered/Resolved]
  - Off label use [Unknown]
  - Contraindicated product administered [Unknown]
